FAERS Safety Report 7528093-3 (Version None)
Quarter: 2011Q2

REPORT INFORMATION
  Report Type: 
  Country: None (occurrence: None)
  Receive Date: 20110607
  Receipt Date: 20110526
  Transmission Date: 20111010
  Serious: Yes (Hospitalization)
  Sender: FDA-Public Use
  Company Number: JP-ELI_LILLY_AND_COMPANY-JP201105007802

PATIENT
  Sex: Female

DRUGS (1)
  1. GEMZAR [Suspect]
     Dosage: UNK
     Route: 042

REACTIONS (1)
  - HEPATIC INFARCTION [None]
